FAERS Safety Report 17583335 (Version 1)
Quarter: 2020Q1

REPORT INFORMATION
  Report Type: Spontaneous
  Country: SE (occurrence: SE)
  Receive Date: 20200326
  Receipt Date: 20200326
  Transmission Date: 20200409
  Serious: Yes (Hospitalization)
  Sender: FDA-Public Use
  Company Number: SE-TEVA-2020-SE-1208858

PATIENT
  Age: 95 Year
  Sex: Female

DRUGS (9)
  1. MIRTAZAPINE. [Suspect]
     Active Substance: MIRTAZAPINE
     Route: 065
     Dates: end: 20200225
  2. ALVEDON [Concomitant]
     Active Substance: ACETAMINOPHEN
     Dosage: IF NECESSARY
  3. FURIX [Concomitant]
  4. ENALAPRIL [Concomitant]
     Active Substance: ENALAPRIL
  5. OMEPRAZOL [Concomitant]
     Active Substance: OMEPRAZOLE
  6. OXASCAND [Suspect]
     Active Substance: OXAZEPAM
     Route: 065
  7. LAKTULOS [Concomitant]
     Dosage: IF NECESSARY
  8. TROMBYL [Concomitant]
     Active Substance: ASPIRIN
  9. FOLACIN [Concomitant]

REACTIONS (2)
  - Depressed level of consciousness [Recovered/Resolved]
  - Balance disorder [Recovered/Resolved]

NARRATIVE: CASE EVENT DATE: 20200225
